FAERS Safety Report 16420865 (Version 1)
Quarter: 2019Q3

REPORT INFORMATION
  Report Type: Spontaneous
  Country: US (occurrence: US)
  Receive Date: 20190611
  Receipt Date: 20190611
  Transmission Date: 20191004
  Serious: Yes (Life-Threatening, Other)
  Sender: FDA-Public Use
  Company Number: None

PATIENT
  Age: 65 Month
  Sex: Male
  Weight: 180 kg

DRUGS (5)
  1. ASPIRIN 81 MG [Concomitant]
     Active Substance: ASPIRIN
  2. LORATADINE. [Concomitant]
     Active Substance: LORATADINE
  3. ROSUVASTATIN. [Concomitant]
     Active Substance: ROSUVASTATIN
  4. GENERIC FOR: METROPOLOL TARTRATE TABS 25MG [Suspect]
     Active Substance: METOPROLOL TARTRATE
     Indication: HYPERTENSION
     Dosage: ?          QUANTITY:1 TABLET(S);?
     Route: 048
     Dates: start: 20190508, end: 20190530
  5. MULTIVITAMINS [Concomitant]
     Active Substance: VITAMINS

REACTIONS (6)
  - Dizziness [None]
  - Nausea [None]
  - Chest pain [None]
  - Product substitution issue [None]
  - Heart rate decreased [None]
  - Blood pressure increased [None]

NARRATIVE: CASE EVENT DATE: 20190530
